FAERS Safety Report 15080671 (Version 1)
Quarter: 2018Q2

REPORT INFORMATION
  Report Type: Report from Study
  Country: FR (occurrence: FR)
  Receive Date: 20180628
  Receipt Date: 20180628
  Transmission Date: 20180711
  Serious: Yes (Other)
  Sender: FDA-Public Use
  Company Number: FR-ACCORD-069051

PATIENT

DRUGS (11)
  1. ENDOXAN [Suspect]
     Active Substance: CYCLOPHOSPHAMIDE
     Indication: NON-HODGKIN^S LYMPHOMA
     Dosage: CYCLE 3 AT DAY 1,CYCLE 4 AT DAY 1, 6000 MG/M2 HIGHER DOSE AT CYCLE 1 AT DAY 1, 500 MG/M2 AT DAY 1
     Route: 065
  2. METHOTREXATE. [Concomitant]
     Active Substance: METHOTREXATE
     Indication: PROPHYLAXIS
     Dosage: PATIENT RECEIVED C1 AND C2 IN OUTPATIENT SETTING AND C3 AND C4 IN HOSPITAL. THE PATIENT HAD.
     Route: 037
  3. CISPLATIN. [Suspect]
     Active Substance: CISPLATIN
     Indication: NON-HODGKIN^S LYMPHOMA
     Route: 065
  4. DOXORUBICIN [Suspect]
     Active Substance: DOXORUBICIN
     Indication: NON-HODGKIN^S LYMPHOMA
     Dosage: DAY 1, CYCLE 1, CYCLE 4,CYCLE 2
  5. GRANULOCYTE COLONY STIMULATING [Concomitant]
     Active Substance: GRANULOCYTE COLONY-STIMULATING FACTOR NOS
     Indication: PRODUCT USED FOR UNKNOWN INDICATION
     Dosage: STARTED AT DAY 6 FOR MINIMUM OF 7 DAYS
  6. CIPROFLOXACIN. [Concomitant]
     Active Substance: CIPROFLOXACIN
     Indication: PROPHYLAXIS
     Route: 048
  7. PREDNISONE. [Suspect]
     Active Substance: PREDNISONE
     Indication: NON-HODGKIN^S LYMPHOMA
     Dosage: DAY 1 TO DAY 4, CYCLE 1, CYCLE 4 , CYCLE 3
     Route: 065
  8. VINCRISTINE [Suspect]
     Active Substance: VINCRISTINE
     Indication: NON-HODGKIN^S LYMPHOMA
     Dosage: DAY 1, CYCLE 3
     Route: 065
  9. BENZYLPENICILLIN [Concomitant]
     Active Substance: PENICILLIN G
     Indication: PROPHYLAXIS
     Dosage: 1 * 10^6 TWICE DAILY
     Route: 048
  10. UROMITEXAN [Suspect]
     Active Substance: MESNA
     Indication: NON-HODGKIN^S LYMPHOMA
     Dosage: MESNA WAS INFUSED BEFORE, AND 4 HOURS AND 8 H AFTER EACH DRUG INFUSION, WITH A TOTAL DOSE
     Route: 065
  11. ETOPOSIDE. [Suspect]
     Active Substance: ETOPOSIDE
     Indication: NON-HODGKIN^S LYMPHOMA
     Dosage: DAY 1 AND DAY 2
     Route: 065

REACTIONS (2)
  - Off label use [Unknown]
  - Nephropathy toxic [Unknown]
